FAERS Safety Report 15821377 (Version 1)
Quarter: 2019Q1

REPORT INFORMATION
  Report Type: Spontaneous
  Country: US (occurrence: US)
  Receive Date: 20190114
  Receipt Date: 20190114
  Transmission Date: 20190417
  Serious: Yes (Other)
  Sender: FDA-Public Use
  Company Number: US-JNJFOC-20190113685

PATIENT

DRUGS (1)
  1. REMICADE [Suspect]
     Active Substance: INFLIXIMAB
     Indication: MESENTERIC FIBROSIS
     Route: 042

REACTIONS (4)
  - Off label use [Unknown]
  - Therapeutic response unexpected [Unknown]
  - Lymphoma [Unknown]
  - Product use in unapproved indication [Unknown]
